FAERS Safety Report 15009125 (Version 4)
Quarter: 2018Q3

REPORT INFORMATION
  Report Type: Report from Study
  Country: JP (occurrence: JP)
  Receive Date: 20180614
  Receipt Date: 20180917
  Transmission Date: 20181010
  Serious: Yes (Hospitalization, Other)
  Sender: FDA-Public Use
  Company Number: JP-ROCHE-2137415

PATIENT

DRUGS (8)
  1. MIZORIBINE [Concomitant]
     Active Substance: MIZORIBINE
     Dosage: 500 MG ON DAY 1 AND 550 MG ON DAY 2
     Route: 048
  2. PREDNISOLONE. [Concomitant]
     Active Substance: PREDNISOLONE
     Route: 048
  3. ACETAMINOPHEN. [Concomitant]
     Active Substance: ACETAMINOPHEN
     Dosage: 10 MG/KG, MAXIMUM 300 MG
     Route: 065
  4. D?CHLORPHENIRAMINE MALEATE [Concomitant]
     Active Substance: DEXCHLORPHENIRAMINE MALEATE
     Dosage: 0.4?2.0 MG DEPENDING ON THE PATIENT`S AGE
     Route: 065
  5. FLUCONAZOLE. [Concomitant]
     Active Substance: FLUCONAZOLE
     Indication: PROPHYLAXIS
  6. RITUXIMAB. [Suspect]
     Active Substance: RITUXIMAB
     Indication: NEPHROTIC SYNDROME
     Dosage: ONE TIME DOSE
     Route: 042
  7. SULFAMETHOXAZOLE/TRIMETHOPRIM [Concomitant]
     Active Substance: SULFAMETHOXAZOLE\TRIMETHOPRIM
     Indication: PROPHYLAXIS
     Route: 065
  8. METHYLPREDNISOLONE. [Concomitant]
     Active Substance: METHYLPREDNISOLONE
     Dosage: 1?1.5 MG/KG
     Route: 042

REACTIONS (10)
  - Neutropenia [Unknown]
  - Granulocyte count decreased [Unknown]
  - Mycoplasma infection [Unknown]
  - Influenza [Unknown]
  - Agranulocytosis [Unknown]
  - Viral infection [Unknown]
  - Infusion related reaction [Unknown]
  - Electrocardiogram abnormal [Unknown]
  - Dermatitis atopic [Unknown]
  - Steroid withdrawal syndrome [Unknown]
